FAERS Safety Report 14964196 (Version 1)
Quarter: 2018Q2

REPORT INFORMATION
  Report Type: Spontaneous
  Country: SG (occurrence: SG)
  Receive Date: 20180601
  Receipt Date: 20180601
  Transmission Date: 20180711
  Serious: Yes (Other)
  Sender: FDA-Public Use
  Company Number: SG-ASTRAZENECA-2018SE69717

PATIENT
  Sex: Male

DRUGS (1)
  1. TAGRISSO [Suspect]
     Active Substance: OSIMERTINIB
     Dosage: 80
     Route: 048
     Dates: start: 20180205, end: 20180420

REACTIONS (3)
  - Headache [Unknown]
  - Rectal haemorrhage [Unknown]
  - Hot flush [Unknown]

NARRATIVE: CASE EVENT DATE: 20180205
